APPROVED DRUG PRODUCT: CEFADROXIL
Active Ingredient: CEFADROXIL/CEFADROXIL HEMIHYDRATE
Strength: EQ 500MG BASE
Dosage Form/Route: CAPSULE;ORAL
Application: A062695 | Product #001
Applicant: TEVA PHARMACEUTICALS USA INC
Approved: Feb 10, 1989 | RLD: No | RS: No | Type: DISCN